FAERS Safety Report 23826547 (Version 1)
Quarter: 2024Q2

REPORT INFORMATION
  Report Type: Report from Study
  Country: US (occurrence: None)
  Receive Date: 20240507
  Receipt Date: 20240507
  Transmission Date: 20240716
  Serious: Yes (Other)
  Sender: FDA-Public Use
  Company Number: 2024A017902

PATIENT
  Age: 69 Year
  Sex: Female

DRUGS (11)
  1. BUDESONIDE [Suspect]
     Active Substance: BUDESONIDE
     Route: 055
  2. TAGRISSO [Suspect]
     Active Substance: OSIMERTINIB
     Indication: Lung carcinoma cell type unspecified stage 0
     Dosage: TAKE 1 TABLET BY MOUTH EVERY OTHER DAY
     Route: 048
  3. PANTOPRAZOLE [Concomitant]
     Active Substance: PANTOPRAZOLE
  4. GLUCOSAMINE SULFATE [Concomitant]
     Active Substance: GLUCOSAMINE SULFATE
  5. BIOTIN [Concomitant]
     Active Substance: BIOTIN
  6. BUDESONIDE CPE [Concomitant]
     Route: 055
  7. CALCIUM [Concomitant]
     Active Substance: CALCIUM
  8. MELATONIN [Concomitant]
     Active Substance: MELATONIN
  9. METOPROLOL [Concomitant]
     Active Substance: METOPROLOL
  10. ONDANSETRON [Concomitant]
     Active Substance: ONDANSETRON
  11. TOPIRAMATE [Concomitant]
     Active Substance: TOPIRAMATE

REACTIONS (18)
  - Colitis microscopic [Recovered/Resolved]
  - Dehydration [Unknown]
  - Gastrointestinal disorder [Unknown]
  - Headache [Unknown]
  - Constipation [Unknown]
  - Hypertension [Unknown]
  - Asthenia [Unknown]
  - Fatigue [Recovered/Resolved]
  - Decreased appetite [Unknown]
  - Nausea [Recovered/Resolved]
  - Muscle spasms [Unknown]
  - Diarrhoea [Unknown]
  - Stomatitis [Recovered/Resolved]
  - Skin discolouration [Unknown]
  - Pruritus [Unknown]
  - Migraine [Unknown]
  - Drug intolerance [Unknown]
  - Intentional product misuse [Unknown]
